FAERS Safety Report 4705513-0 (Version None)
Quarter: 2005Q2

REPORT INFORMATION
  Report Type: 
  Country: None (occurrence: None)
  Receive Date: 20050628
  Receipt Date: 20050610
  Transmission Date: 20051028
  Serious: Yes (Hospitalization)
  Sender: FDA-Public Use
  Company Number: FR_050606624

PATIENT
  Age: 74 Year
  Sex: Male
  Weight: 65 kg

DRUGS (6)
  1. PROZAC [Suspect]
     Dosage: 20 MG/1 DAY
     Dates: start: 20050518, end: 20050523
  2. AUGMENTIN [Concomitant]
  3. NEXIUM [Concomitant]
  4. LASILIX (FUROSEMIDE /00032601/) [Concomitant]
  5. FLUCONAZOLE [Concomitant]
  6. HEPARINE (HEPARIN /00027701/) [Concomitant]

REACTIONS (2)
  - LEUKOPENIA [None]
  - NEUTROPENIA [None]
